FAERS Safety Report 7952973-8 (Version None)
Quarter: 2011Q4

REPORT INFORMATION
  Report Type: 
  Country: None (occurrence: None)
  Receive Date: 20111201
  Receipt Date: 20111128
  Transmission Date: 20120403
  Serious: Yes (Hospitalization, Other)
  Sender: FDA-Public Use
  Company Number: PHHY2011FR80258

PATIENT
  Sex: Male
  Weight: 67 kg

DRUGS (5)
  1. ONBREZ [Suspect]
     Indication: CHRONIC OBSTRUCTIVE PULMONARY DISEASE
     Dosage: 150 UG, BID
     Dates: start: 20110709, end: 20110719
  2. CORTICOSTEROIDS [Concomitant]
     Indication: DYSPNOEA
     Dosage: 0.5 MG/KG/+DAY
     Route: 048
  3. AIROMIR [Concomitant]
     Indication: DYSPNOEA
     Dosage: UNK
  4. LEXOMIL [Concomitant]
     Indication: ANXIETY
     Dosage: 3 MG, QD
     Dates: start: 20110610, end: 20110719
  5. PREDNISOLONE [Concomitant]
     Indication: DYSPNOEA
     Dosage: 60 MG, UNK

REACTIONS (15)
  - OVERDOSE [None]
  - OEDEMA PERIPHERAL [None]
  - EJECTION FRACTION DECREASED [None]
  - TACHYCARDIA [None]
  - PULMONARY OEDEMA [None]
  - HYPOTENSION [None]
  - AORTIC VALVE INCOMPETENCE [None]
  - ORTHOPNOEA [None]
  - MITRAL VALVE INCOMPETENCE [None]
  - CARDIAC FAILURE [None]
  - BRAIN NATRIURETIC PEPTIDE INCREASED [None]
  - DYSPNOEA [None]
  - DILATATION VENTRICULAR [None]
  - PULMONARY HYPERTENSION [None]
  - CONGESTIVE CARDIOMYOPATHY [None]
